FAERS Safety Report 9931019 (Version 2)
Quarter: 2014Q1

REPORT INFORMATION
  Report Type: Not Available
  Country: IL (occurrence: IL)
  Receive Date: 20140227
  Receipt Date: 20140307
  Transmission Date: 20141002
  Serious: Yes (Hospitalization)
  Sender: FDA-Public Use
  Company Number: IL-ONYX-2014-0453

PATIENT
  Age: 64 Year
  Sex: Female

DRUGS (6)
  1. KYPROLIS [Suspect]
     Indication: PLASMA CELL MYELOMA
     Route: 042
     Dates: start: 20140202
  2. KYPROLIS [Suspect]
     Route: 042
     Dates: start: 20140209
  3. KYPROLIS [Suspect]
     Route: 042
     Dates: start: 20140216
  4. KYPROLIS [Suspect]
     Route: 042
     Dates: start: 20140303
  5. POMALIDOMIDE [Concomitant]
     Indication: PLASMA CELL MYELOMA
     Dates: start: 20140216
  6. DEXAMETHASONE [Concomitant]
     Indication: PLASMA CELL MYELOMA
     Dates: start: 20140202

REACTIONS (4)
  - Cardiac failure congestive [Recovering/Resolving]
  - Mitral valve incompetence [Recovering/Resolving]
  - Hepatic enzyme increased [Unknown]
  - Hepatitis B [Unknown]
